FAERS Safety Report 20297855 (Version 3)
Quarter: 2022Q1

REPORT INFORMATION
  Report Type: Spontaneous
  Country: CN (occurrence: CN)
  Receive Date: 20220105
  Receipt Date: 20220205
  Transmission Date: 20220423
  Serious: Yes (Hospitalization, Other)
  Sender: FDA-Public Use
  Company Number: CN-JNJFOC-20211263602

PATIENT
  Age: 79 Year
  Sex: Male
  Weight: 60 kg

DRUGS (10)
  1. ERLEADA [Suspect]
     Active Substance: APALUTAMIDE
     Indication: Hormone-dependent prostate cancer
     Dosage: 120 TABLETS PER BOTTLE?4 TABLETS/DAY
     Route: 048
  2. LEUPROLIDE ACETATE [Concomitant]
     Active Substance: LEUPROLIDE ACETATE
     Indication: Prostate cancer
     Route: 065
  3. VALPROIC ACID [Concomitant]
     Active Substance: VALPROIC ACID
     Indication: Epilepsy
     Route: 065
  4. VALPROIC ACID [Concomitant]
     Active Substance: VALPROIC ACID
     Route: 065
  5. SODIUM CHLORIDE [Concomitant]
     Active Substance: SODIUM CHLORIDE
     Indication: Product used for unknown indication
     Dosage: 0.9%, 500ML/BAG, IV.GTT
     Route: 042
  6. CODEINE PHOSPHATE\IBUPROFEN [Concomitant]
     Active Substance: CODEINE PHOSPHATE\IBUPROFEN
     Indication: Product used for unknown indication
     Dosage: 20 TABLETS/BOX, 2 TABLETS, PO, Q12H ON 09-DEC-2021. 20 TABLETS/BOX, 3 TABLETS, PO, Q12H ON 10-DEC-20
     Route: 048
  7. THYMALFASIN [Concomitant]
     Active Substance: THYMALFASIN
     Indication: Product used for unknown indication
     Dosage: 1.6MG/BOTTLE) 1.600MG, IH, BIW (2-5)
     Route: 065
  8. LACTULOSE [Concomitant]
     Active Substance: LACTULOSE
     Indication: Product used for unknown indication
     Dosage: 100ML/BOTTLE) 20ML
     Route: 048
  9. CEFACLOR [Concomitant]
     Active Substance: CEFACLOR
     Indication: Product used for unknown indication
     Dosage: (375MGX4 TABLETS/BOX), Q12H
     Route: 048
  10. INCADRONATE DISODIUM [Concomitant]
     Active Substance: INCADRONATE DISODIUM
     Indication: Bone metabolism disorder
     Route: 065

REACTIONS (2)
  - Pain in extremity [Recovering/Resolving]
  - Epilepsy [Unknown]

NARRATIVE: CASE EVENT DATE: 20210101
